FAERS Safety Report 14600176 (Version 1)
Quarter: 2018Q1

REPORT INFORMATION
  Report Type: Spontaneous
  Country: IL (occurrence: IL)
  Receive Date: 20180305
  Receipt Date: 20180305
  Transmission Date: 20180509
  Serious: Yes (Death, Other)
  Sender: FDA-Public Use
  Company Number: IL-MYLANLABS-2018M1013641

PATIENT
  Age: 5 Year
  Sex: Male

DRUGS (8)
  1. HEPARIN [Suspect]
     Active Substance: HEPARIN SODIUM
     Indication: PRODUCT USED FOR UNKNOWN INDICATION
     Route: 050
     Dates: start: 200903
  2. VASOPRESSIN. [Concomitant]
     Active Substance: VASOPRESSIN
     Indication: PRODUCT USED FOR UNKNOWN INDICATION
     Dosage: 0.0003 UNITS/KG/MIN INFUSION
     Route: 050
     Dates: start: 200903
  3. MILRINONE [Concomitant]
     Active Substance: MILRINONE
     Dosage: 0.1 MICROG/KG/MIN
     Route: 065
     Dates: start: 200903
  4. ADRENALINE                         /00003901/ [Concomitant]
     Active Substance: EPINEPHRINE
     Dosage: 0.1 MICROG/KG/MIN
     Route: 065
     Dates: start: 200903
  5. NORADRENALIN                       /00127501/ [Concomitant]
     Active Substance: NOREPINEPHRINE\NOREPINEPHRINE BITARTRATE
     Dosage: 0.15 MICROG/KG/MIN
     Route: 065
     Dates: start: 200903
  6. ADRENALINE                         /00003901/ [Concomitant]
     Active Substance: EPINEPHRINE
     Indication: PRODUCT USED FOR UNKNOWN INDICATION
     Dosage: 0.3 MICROG/KG/MIN
     Route: 065
     Dates: start: 200903
  7. NORADRENALIN                       /00127501/ [Concomitant]
     Active Substance: NOREPINEPHRINE\NOREPINEPHRINE BITARTRATE
     Indication: PRODUCT USED FOR UNKNOWN INDICATION
     Dosage: 0.3 MICROG/KG/MIN
     Route: 065
     Dates: start: 200903
  8. MILRINONE [Concomitant]
     Active Substance: MILRINONE
     Indication: PRODUCT USED FOR UNKNOWN INDICATION
     Dosage: 0.75 MICROG/KG/MIN
     Route: 065
     Dates: start: 200903

REACTIONS (3)
  - Intracardiac thrombus [Fatal]
  - Heparin-induced thrombocytopenia [Fatal]
  - Device failure [Fatal]

NARRATIVE: CASE EVENT DATE: 2009
